FAERS Safety Report 17866495 (Version 1)
Quarter: 2020Q2

REPORT INFORMATION
  Report Type: Spontaneous
  Country: US (occurrence: US)
  Receive Date: 20200605
  Receipt Date: 20200605
  Transmission Date: 20200714
  Serious: Yes (Other)
  Sender: FDA-Public Use
  Company Number: US-SA-2020SA144389

PATIENT

DRUGS (1)
  1. DULCOEASE [Suspect]
     Active Substance: DOCUSATE SODIUM
     Dosage: 2 DF, QD
     Route: 065

REACTIONS (2)
  - Drug dependence [Unknown]
  - Incorrect product administration duration [Unknown]
